FAERS Safety Report 7825863-9 (Version None)
Quarter: 2011Q4

REPORT INFORMATION
  Report Type: 
  Country: None (occurrence: None)
  Receive Date: 20111019
  Receipt Date: 20111005
  Transmission Date: 20120403
  Serious: Yes (Other)
  Sender: FDA-Public Use
  Company Number: JP-ROCHE-1003840

PATIENT
  Age: 7 Decade
  Sex: Female

DRUGS (6)
  1. XELODA [Suspect]
     Indication: BREAST CANCER METASTATIC
     Dosage: DOSAGE IS UNCERTAIN
     Route: 048
  2. TYKERB [Concomitant]
     Indication: BREAST CANCER METASTATIC
     Dosage: DOSAGE IS UNCERTAIN.
     Route: 048
  3. HERCEPTIN [Suspect]
     Dosage: DOSAGE IS UNCERTAIN.
     Route: 041
  4. HERCEPTIN [Suspect]
     Indication: BREAST CANCER METASTATIC
     Dosage: DOSAGE IS UNCERTAIN.
     Route: 041
  5. XELODA [Suspect]
     Dosage: DOSAGE IS UNCERTAIN.
     Route: 048
  6. VINORELBINE [Concomitant]
     Indication: BREAST CANCER METASTATIC
     Dosage: DOSAGE IS UNCERTAIN.
     Route: 042

REACTIONS (2)
  - ULCER [None]
  - OSTEONECROSIS [None]
